FAERS Safety Report 7290801-7 (Version None)
Quarter: 2011Q1

REPORT INFORMATION
  Report Type: 
  Country: None (occurrence: None)
  Receive Date: 20110214
  Receipt Date: 20110204
  Transmission Date: 20110831
  Serious: Yes (Other)
  Sender: FDA-Public Use
  Company Number: JP-ROCHE-758901

PATIENT
  Age: 76 Year
  Sex: Female

DRUGS (3)
  1. XELODA [Suspect]
     Route: 048
  2. ELPLAT [Concomitant]
     Route: 041
  3. HORMONE [Concomitant]
     Dosage: ADRENAL HORMONE PREPARATIONS

REACTIONS (1)
  - MYASTHENIA GRAVIS [None]
